FAERS Safety Report 8264499-5 (Version None)
Quarter: 2012Q2

REPORT INFORMATION
  Report Type: 
  Country: None (occurrence: None)
  Receive Date: 20120403
  Receipt Date: 20120326
  Transmission Date: 20120825
  Serious: Yes (Hospitalization, Other)
  Sender: FDA-Public Use
  Company Number: DAV-AE-PTU-12-01

PATIENT
  Age: 27 Year
  Sex: Male

DRUGS (2)
  1. METOPROLOL TARTRATE [Concomitant]
  2. PROPYL-THIOURACIL [Suspect]
     Indication: BASEDOW'S DISEASE
     Dosage: 150MG TID

REACTIONS (6)
  - ISCHAEMIC STROKE [None]
  - SYSTEMIC LUPUS ERYTHEMATOSUS [None]
  - HEART RATE INCREASED [None]
  - ATRIAL SEPTAL DEFECT [None]
  - ANTIPHOSPHOLIPID SYNDROME [None]
  - CEREBROVASCULAR ACCIDENT [None]
